FAERS Safety Report 12976857 (Version 2)
Quarter: 2016Q4

REPORT INFORMATION
  Report Type: Report from Study
  Country: IE (occurrence: IE)
  Receive Date: 20161128
  Receipt Date: 20161205
  Transmission Date: 20170207
  Serious: Yes (Hospitalization, Disabling)
  Sender: FDA-Public Use
  Company Number: PHFR2016IE009279

PATIENT
  Age: 77 Year
  Sex: Female

DRUGS (5)
  1. ULTIBRO BREEZHALER [Suspect]
     Active Substance: GLYCOPYRRONIUM\INDACATEROL
     Indication: CHRONIC OBSTRUCTIVE PULMONARY DISEASE
     Dosage: 1 DF (85/43), UNK
     Route: 055
     Dates: start: 20140923
  2. GALFER [Concomitant]
     Active Substance: IRON
     Indication: PRODUCT USED FOR UNKNOWN INDICATION
     Dosage: 305 MG, QD
     Route: 048
     Dates: start: 20100424
  3. PARALIEF [Concomitant]
     Indication: POLYARTERITIS NODOSA
     Dosage: 500 MG, QD
     Route: 048
     Dates: start: 20160315
  4. CRESTOR [Concomitant]
     Active Substance: ROSUVASTATIN CALCIUM
     Indication: BLOOD CHOLESTEROL INCREASED
     Dosage: 20 MG, QD
     Route: 048
     Dates: start: 20081119
  5. XARELTO [Concomitant]
     Active Substance: RIVAROXABAN
     Indication: PRODUCT USED FOR UNKNOWN INDICATION
     Dosage: 20 MG, QD
     Route: 048
     Dates: start: 20160315

REACTIONS (6)
  - Non-small cell lung cancer stage IV [Unknown]
  - Pubis fracture [Unknown]
  - Pelvic fracture [Unknown]
  - Groin pain [Unknown]
  - Pulmonary embolism [Unknown]
  - Joint swelling [Unknown]

NARRATIVE: CASE EVENT DATE: 20160205
